FAERS Safety Report 6403311-3 (Version None)
Quarter: 2009Q4

REPORT INFORMATION
  Report Type: 
  Country: None (occurrence: None)
  Receive Date: 20091016
  Receipt Date: 20091007
  Transmission Date: 20100525
  Serious: Yes (Death, Life-Threatening, Hospitalization)
  Sender: FDA-Public Use
  Company Number: US-AMGEN-US233092

PATIENT
  Sex: Female
  Weight: 49.9 kg

DRUGS (23)
  1. PANITUMUMAB [Suspect]
     Indication: SQUAMOUS CELL CARCINOMA
     Route: 042
     Dates: start: 20070129, end: 20070625
  2. TAXOTERE [Concomitant]
     Route: 042
     Dates: start: 20070129, end: 20070625
  3. CISPLATIN [Concomitant]
     Route: 042
     Dates: start: 20070129, end: 20070625
  4. CALCIUM [Concomitant]
     Route: 048
     Dates: start: 20070101, end: 20070708
  5. VITAMIN E [Concomitant]
     Route: 048
     Dates: start: 20070101, end: 20070708
  6. ASCORBIC ACID [Concomitant]
     Route: 048
     Dates: start: 20070101, end: 20070708
  7. LORTAB [Concomitant]
     Route: 048
     Dates: start: 20070101, end: 20070708
  8. NEXIUM [Concomitant]
     Route: 048
     Dates: start: 20070101, end: 20070708
  9. NASONEX [Concomitant]
     Route: 048
     Dates: start: 20070101, end: 20070708
  10. PERIDEX [Concomitant]
     Route: 048
     Dates: start: 20070101, end: 20070708
  11. OXYCONTIN [Concomitant]
     Route: 048
     Dates: start: 20070101, end: 20070708
  12. MYCELEX [Concomitant]
     Route: 048
     Dates: start: 20070207, end: 20070708
  13. MEGACE [Concomitant]
     Route: 048
     Dates: start: 20070205, end: 20070708
  14. ANZEMET [Concomitant]
     Route: 048
     Dates: start: 20070205, end: 20070708
  15. ZOFRAN [Concomitant]
     Route: 048
     Dates: start: 20070219, end: 20070708
  16. ROZEREM [Concomitant]
     Route: 048
     Dates: start: 20070326, end: 20070708
  17. POTASSIUM CHLORIDE [Concomitant]
     Route: 048
     Dates: start: 20070409, end: 20070708
  18. CHONDROITIN [Concomitant]
     Route: 048
     Dates: start: 20070101, end: 20070708
  19. LASIX [Concomitant]
     Route: 048
     Dates: start: 20070101, end: 20070708
  20. GLUCOSAMINE [Concomitant]
     Route: 048
     Dates: start: 20070101, end: 20070708
  21. COENZYME Q10 [Concomitant]
     Route: 048
     Dates: start: 20070101, end: 20070708
  22. MULTI-VITAMINS [Concomitant]
     Route: 048
     Dates: start: 20070101, end: 20070708
  23. MAALOX [Concomitant]
     Route: 048
     Dates: start: 20070604, end: 20070708

REACTIONS (7)
  - ATRIAL FIBRILLATION [None]
  - HYPOKALAEMIA [None]
  - HYPOMAGNESAEMIA [None]
  - HYPOTENSION [None]
  - RENAL FAILURE ACUTE [None]
  - SEPSIS [None]
  - THROMBOCYTOPENIA [None]
